FAERS Safety Report 5431074-7 (Version None)
Quarter: 2007Q3

REPORT INFORMATION
  Report Type: 
  Country: None (occurrence: None)
  Receive Date: 20070830
  Receipt Date: 20070202
  Transmission Date: 20080115
  Serious: No
  Sender: FDA-Public Use
  Company Number: A0638155A

PATIENT
  Age: 63 Year
  Sex: Male

DRUGS (12)
  1. WELLBUTRIN XL [Suspect]
     Indication: DEPRESSION
     Dosage: 750MG PER DAY
     Route: 048
     Dates: end: 20070201
  2. EFFEXOR [Concomitant]
  3. KLONOPIN [Concomitant]
  4. CRESTOR [Concomitant]
  5. TRILEPTAL [Concomitant]
  6. ALTACE [Concomitant]
  7. NEXIUM [Concomitant]
  8. ZETIA [Concomitant]
  9. DILTIAZEM [Concomitant]
  10. TOPROL-XL [Concomitant]
  11. PLAVIX [Concomitant]
  12. LAMICTAL [Concomitant]

REACTIONS (5)
  - AMNESIA [None]
  - BALANCE DISORDER [None]
  - FALL [None]
  - OVERDOSE [None]
  - TREMOR [None]
